FAERS Safety Report 9280739 (Version 1)
Quarter: 2013Q2

REPORT INFORMATION
  Report Type: Spontaneous
  Country: CN (occurrence: CN)
  Receive Date: 20130509
  Receipt Date: 20130509
  Transmission Date: 20140414
  Serious: Yes (Other)
  Sender: FDA-Public Use
  Company Number: CN-ROCHE-1222932

PATIENT
  Age: 57 Year
  Sex: Female

DRUGS (2)
  1. XELODA [Suspect]
     Indication: RECTAL CANCER
     Route: 048
     Dates: start: 201301
  2. OXALIPLATIN [Concomitant]
     Indication: RECTAL CANCER
     Route: 041
     Dates: start: 201301

REACTIONS (1)
  - Metastases to lymph nodes [Not Recovered/Not Resolved]
